FAERS Safety Report 17508727 (Version 1)
Quarter: 2020Q1

REPORT INFORMATION
  Report Type: Spontaneous
  Country: US (occurrence: US)
  Receive Date: 20200305
  Receipt Date: 20200305
  Transmission Date: 20200409
  Serious: Yes (Hospitalization)
  Sender: FDA-Public Use
  Company Number: None

PATIENT
  Sex: Male

DRUGS (10)
  1. TYLENOL [Concomitant]
     Active Substance: ACETAMINOPHEN
  2. VIGABATRIN. [Suspect]
     Active Substance: VIGABATRIN
     Indication: EPILEPSY
     Route: 048
     Dates: start: 20180413
  3. PREVACID [Concomitant]
     Active Substance: LANSOPRAZOLE
  4. ALBUTEROL. [Concomitant]
     Active Substance: ALBUTEROL
  5. SODIUM CHLORIDE. [Concomitant]
     Active Substance: SODIUM CHLORIDE
  6. VIMPAT [Concomitant]
     Active Substance: LACOSAMIDE
  7. AUGMENTIN [Concomitant]
     Active Substance: AMOXICILLIN\CLAVULANATE POTASSIUM
  8. MOTRIN [Concomitant]
     Active Substance: IBUPROFEN
  9. TOPAMAX [Concomitant]
     Active Substance: TOPIRAMATE
  10. KLONOPIN [Concomitant]
     Active Substance: CLONAZEPAM

REACTIONS (2)
  - Pneumonia aspiration [None]
  - Therapy cessation [None]
